FAERS Safety Report 5390733-5 (Version None)
Quarter: 2007Q3

REPORT INFORMATION
  Report Type: 
  Country: None (occurrence: None)
  Receive Date: 20070716
  Receipt Date: 20051026
  Transmission Date: 20080115
  Serious: Yes (Death, Hospitalization)
  Sender: FDA-Public Use
  Company Number: MPS1-10457

PATIENT
  Age: 55 Year
  Sex: Female
  Weight: 50 kg

DRUGS (2)
  1. ALDURAZYME [Suspect]
     Indication: MUCOPOLYSACCHARIDOSIS I
  2. ANTICOAGULANT [Concomitant]

REACTIONS (6)
  - CEREBRAL HAEMORRHAGE [None]
  - COMA [None]
  - DISORIENTATION [None]
  - HAEMORRHAGE [None]
  - HEADACHE [None]
  - OEDEMA [None]
